FAERS Safety Report 17274741 (Version 3)
Quarter: 2020Q2

REPORT INFORMATION
  Report Type: Report from Study
  Country: US (occurrence: US)
  Receive Date: 20200115
  Receipt Date: 20200526
  Transmission Date: 20200713
  Serious: Yes (Death, Hospitalization, Other)
  Sender: FDA-Public Use
  Company Number: US-AGIOS-1912US01564

PATIENT

DRUGS (1)
  1. TIBSOVO [Suspect]
     Active Substance: IVOSIDENIB
     Indication: ACUTE MYELOMONOCYTIC LEUKAEMIA
     Dosage: 250 MILLIGRAM, 2 TABLETS (500 MG) DAILY
     Route: 048
     Dates: start: 20190829

REACTIONS (4)
  - Death [Fatal]
  - Radiotherapy [Unknown]
  - Listless [Unknown]
  - Vomiting [Unknown]

NARRATIVE: CASE EVENT DATE: 20200112
